FAERS Safety Report 8680671 (Version 2)
Quarter: 2012Q4

REPORT INFORMATION
  Report Type: Spontaneous
  Country: US (occurrence: None)
  Receive Date: 20120706
  Receipt Date: 20121116
  Transmission Date: 20130627
  Serious: Yes (Death)
  Sender: FDA-Public Use
  Company Number: 2012-313

PATIENT
  Age: 51 Year
  Sex: Male

DRUGS (5)
  1. FAZACLO [Suspect]
     Dosage: 200 MG, QD, ORAL
     Route: 048
     Dates: start: 20120104, end: 20120412
  2. COGENTIN [Concomitant]
  3. KLONOPIN [Concomitant]
  4. NEXIUM [Concomitant]
  5. SYNTHROID [Concomitant]

REACTIONS (3)
  - Respiratory arrest [None]
  - Cardiac arrest [None]
  - Hypertension [None]
